FAERS Safety Report 15834204 (Version 2)
Quarter: 2019Q4

REPORT INFORMATION
  Report Type: Spontaneous
  Country: FR (occurrence: FR)
  Receive Date: 20190116
  Receipt Date: 20191220
  Transmission Date: 20200122
  Serious: Yes (Life-Threatening)
  Sender: FDA-Public Use
  Company Number: FR-MYLANLABS-2019M1003833

PATIENT
  Age: 88 Year
  Sex: Female
  Weight: 54 kg

DRUGS (7)
  1. BISOCE [Suspect]
     Active Substance: BISOPROLOL
     Dosage: 1.25 MILLIGRAM, BID
     Route: 048
     Dates: start: 20180507
  2. BRILIQUE [Suspect]
     Active Substance: TICAGRELOR
     Indication: ACUTE CORONARY SYNDROME
     Dosage: 180 MILLIGRAM, QD (90 MG MATIN ET SOIR)
     Route: 048
     Dates: start: 20180507, end: 20180512
  3. BISOCE [Suspect]
     Active Substance: BISOPROLOL
     Indication: ACUTE CORONARY SYNDROME
     Dosage: 1.25 PUIS 2.5 MG/JOUR
     Route: 048
     Dates: start: 20180507
  4. KARDEGIC [Suspect]
     Active Substance: ASPIRIN DL-LYSINE
     Indication: ACUTE CORONARY SYNDROME
     Dosage: 75 MILLIGRAM, QD (75 MG LE MIDI)
     Route: 048
     Dates: start: 20180507
  5. APROVEL [Suspect]
     Active Substance: IRBESARTAN
     Indication: HYPERTENSION
     Dosage: 75 MILLIGRAM, QD (75 MG LE MATIN)
     Route: 048
     Dates: start: 20180507
  6. TAHOR [Suspect]
     Active Substance: ATORVASTATIN CALCIUM
     Indication: ACUTE CORONARY SYNDROME
     Dosage: 40 MILLIGRAM, QD (40 MG LE SOIR)
     Route: 048
     Dates: start: 20180507
  7. VALSARTAN. [Concomitant]
     Active Substance: VALSARTAN
     Indication: HYPERTENSION
     Dosage: 80 MILLIGRAM, QD (80 MG LE MATIN)
     Route: 048
     Dates: end: 20180507

REACTIONS (1)
  - Atrioventricular block complete [Recovered/Resolved]

NARRATIVE: CASE EVENT DATE: 20180512
